FAERS Safety Report 6583320-4 (Version None)
Quarter: 2010Q1

REPORT INFORMATION
  Report Type: 
  Country: None (occurrence: None)
  Receive Date: 20100204
  Receipt Date: 20100127
  Transmission Date: 20100710
  Serious: Yes (Death, Hospitalization, Other)
  Sender: FDA-Public Use
  Company Number: WAES 1001USA01718

PATIENT
  Age: 53 Year
  Sex: Female

DRUGS (13)
  1. FOSAMAX [Suspect]
     Indication: OSTEOPOROSIS PROPHYLAXIS
     Dosage: 35 MG/WKY, PO
     Route: 048
     Dates: start: 20071101, end: 20090323
  2. ADALAT CC [Concomitant]
  3. ARTIST [Concomitant]
  4. CINAL [Concomitant]
  5. DIOVAN [Concomitant]
  6. MOBIC [Concomitant]
  7. MUCOSTA [Concomitant]
  8. MG OXIDE [Concomitant]
  9. PEPCID [Concomitant]
  10. RHEUMATREX [Concomitant]
  11. RIMATIL [Concomitant]
  12. SANDOSTATIN INJECTION [Concomitant]
  13. PREDNISOLONE [Concomitant]

REACTIONS (5)
  - ANAEMIA [None]
  - GASTRIC CANCER [None]
  - GASTROINTESTINAL HAEMORRHAGE [None]
  - HYDRONEPHROSIS [None]
  - MALIGNANT ASCITES [None]
